FAERS Safety Report 11678757 (Version 3)
Quarter: 2016Q2

REPORT INFORMATION
  Report Type: Spontaneous
  Country: US (occurrence: US)
  Receive Date: 20151028
  Receipt Date: 20160503
  Transmission Date: 20160815
  Serious: No
  Sender: FDA-Public Use
  Company Number: US-IMPAX LABORATORIES, INC-2015-IPXL-00931

PATIENT
  Sex: Female
  Weight: 53.52 kg

DRUGS (12)
  1. RYTARY [Suspect]
     Active Substance: CARBIDOPA\LEVODOPA
     Dosage: (36.25/145MG) 1 EXTRA CAPSULE AT THE FIFTH HOUR IN ADDITION TO THE INITIAL DOSE
     Route: 048
     Dates: start: 201508, end: 201508
  2. MIRAPEX [Concomitant]
     Active Substance: PRAMIPEXOLE DIHYDROCHLORIDE
     Indication: PARKINSON^S DISEASE
     Dosage: 1 MG, 4 /DAY
     Route: 048
  3. FLUOCINONIDE. [Concomitant]
     Active Substance: FLUOCINONIDE
     Indication: PRURITUS
     Dosage: TWO TIMES A DAY (AS NEEDED)
     Route: 065
  4. RYTARY [Suspect]
     Active Substance: CARBIDOPA\LEVODOPA
     Dosage: 36.25/145 MG 2 CAPSULES AND 23.75/95 MG 1 CAPSULE, 4/DAY
     Route: 048
     Dates: start: 2015
  5. RYTARY [Suspect]
     Active Substance: CARBIDOPA\LEVODOPA
     Dosage: 36.25/145 MG 2 CAPSULES AND 23.75/95 MG 1 CAPSULE, 4/DAY AND ONE 36.25/145 MG IN THE AFTERNOON
     Route: 048
     Dates: start: 201510, end: 201510
  6. RYTARY [Suspect]
     Active Substance: CARBIDOPA\LEVODOPA
     Dosage: (36.25/145MG) 2 CAPSULES FOUR TIMES DAILY
     Route: 048
     Dates: start: 201508
  7. VITAMINS [Concomitant]
     Active Substance: VITAMINS
     Indication: PRODUCT USED FOR UNKNOWN INDICATION
     Dosage: UNK
     Route: 065
  8. TRIAMCINOLONE [Concomitant]
     Active Substance: TRIAMCINOLONE
     Indication: PRURITUS GENERALISED
     Dosage: 2 TIMES A DAY (AS NEEDED)
     Route: 065
  9. RYTARY [Suspect]
     Active Substance: CARBIDOPA\LEVODOPA
     Indication: PARKINSON^S DISEASE
     Dosage: 36.25/145 MG 2 CAPSULES, 4 /DAY
     Route: 048
     Dates: start: 20150814, end: 201508
  10. CLINDAMYCIN [Concomitant]
     Active Substance: CLINDAMYCIN\CLINDAMYCIN PHOSPHATE
     Indication: SEBORRHOEIC DERMATITIS
     Dosage: UNK, PRN
     Route: 065
  11. RYTARY [Suspect]
     Active Substance: CARBIDOPA\LEVODOPA
     Dosage: (36.25/145MG) 3 CAPSULES, SINGLE
     Route: 048
     Dates: start: 201508, end: 201508
  12. PRAMOSONE [Concomitant]
     Active Substance: HYDROCORTISONE ACETATE\PRAMOXINE HYDROCHLORIDE
     Indication: PRURITUS
     Dosage: UNK, PRN
     Route: 065

REACTIONS (7)
  - Weight decreased [Not Recovered/Not Resolved]
  - Confusional state [Recovered/Resolved]
  - Drug effect decreased [Not Recovered/Not Resolved]
  - Labelled drug-food interaction medication error [Unknown]
  - Head discomfort [Recovered/Resolved]
  - Freezing phenomenon [Not Recovered/Not Resolved]
  - Extra dose administered [Unknown]

NARRATIVE: CASE EVENT DATE: 2015
